FAERS Safety Report 21200365 (Version 1)
Quarter: 2022Q3

REPORT INFORMATION
  Report Type: Spontaneous
  Country: US (occurrence: US)
  Receive Date: 20220811
  Receipt Date: 20220811
  Transmission Date: 20221026
  Serious: No
  Sender: FDA-Public Use
  Company Number: US-GSK-US2022116306

PATIENT
  Sex: Female

DRUGS (1)
  1. NUCALA [Suspect]
     Active Substance: MEPOLIZUMAB
     Indication: Asthma
     Dosage: 100 MG

REACTIONS (6)
  - Stress [Unknown]
  - Dyspnoea [Unknown]
  - Asthma [Unknown]
  - Seasonal allergy [Unknown]
  - Condition aggravated [Unknown]
  - Therapy interrupted [Unknown]
